FAERS Safety Report 4655153-7 (Version None)
Quarter: 2005Q2

REPORT INFORMATION
  Report Type: 
  Country: None (occurrence: None)
  Receive Date: 20050505
  Receipt Date: 20050422
  Transmission Date: 20051028
  Serious: Yes (Hospitalization)
  Sender: FDA-Public Use
  Company Number: HQWYE392517FEB05

PATIENT
  Age: 79 Year
  Sex: Female

DRUGS (9)
  1. CORDARONE [Suspect]
     Indication: ARRHYTHMIA
     Dosage: 400 MG 1X PER 1 DAY ORAL
     Route: 048
     Dates: start: 20050201, end: 20050209
  2. LEVOTHYROXINE SODIUM [Concomitant]
  3. KARDEGIC (ACETYLSALICYLATE LYSINE) [Concomitant]
  4. LOPRESSOR [Concomitant]
  5. . [Concomitant]
  6. . [Concomitant]
  7. ESBERIVEN (MELILOT/RUTOSIDE) [Concomitant]
  8. LORAZEPAM [Concomitant]
  9. BECLOMETHASONE DIPROPIONATE [Concomitant]

REACTIONS (5)
  - ABDOMINAL PAIN [None]
  - CYTOLYTIC HEPATITIS [None]
  - NAUSEA [None]
  - RENAL FAILURE ACUTE [None]
  - VERTIGO [None]
